FAERS Safety Report 5529092-3 (Version None)
Quarter: 2007Q4

REPORT INFORMATION
  Report Type: 
  Country: None (occurrence: None)
  Receive Date: 20071129
  Receipt Date: 20061122
  Transmission Date: 20080405
  Serious: No
  Sender: FDA-Public Use
  Company Number: A0628463A

PATIENT
  Age: 49 Year
  Sex: Female

DRUGS (1)
  1. WELLBUTRIN SR [Suspect]
     Indication: DEPRESSION
     Route: 048
     Dates: start: 20061102, end: 20061109

REACTIONS (4)
  - ABNORMAL DREAMS [None]
  - ANXIETY [None]
  - NIGHT SWEATS [None]
  - TINNITUS [None]
